FAERS Safety Report 5456469-7 (Version None)
Quarter: 2007Q3

REPORT INFORMATION
  Report Type: 
  Country: None (occurrence: None)
  Receive Date: 20070918
  Receipt Date: 20070910
  Transmission Date: 20080115
  Serious: Yes (Other)
  Sender: FDA-Public Use
  Company Number: US-ELI_LILLY_AND_COMPANY-US200709002085

PATIENT
  Sex: Male

DRUGS (3)
  1. HUMALOG [Suspect]
     Indication: DIABETES MELLITUS
     Dosage: 10 U, 3/D
     Dates: start: 20020101
  2. HUMALOG [Suspect]
     Dosage: UNK, OTHER SLIDING SCALE
     Dates: start: 20020101
  3. HUMULIN N [Suspect]
     Dosage: UNK, 2/D

REACTIONS (1)
  - HEPATIC CIRRHOSIS [None]
